FAERS Safety Report 4443671-6 (Version None)
Quarter: 2004Q3

REPORT INFORMATION
  Report Type: 
  Country: None (occurrence: None)
  Receive Date: 20040908
  Receipt Date: 20040827
  Transmission Date: 20050211
  Serious: Yes (Other)
  Sender: FDA-Public Use
  Company Number: NO-GLAXOSMITHKLINE-B0344402A

PATIENT
  Age: 76 Year
  Sex: Female

DRUGS (1)
  1. ZINACEF [Suspect]
     Indication: PNEUMONIA
     Dates: start: 20040710

REACTIONS (2)
  - C-REACTIVE PROTEIN INCREASED [None]
  - NEUTROPENIA [None]
